FAERS Safety Report 10684729 (Version 1)
Quarter: 2014Q4

REPORT INFORMATION
  Report Type: Spontaneous
  Country: US (occurrence: US)
  Receive Date: 20141231
  Receipt Date: 20141231
  Transmission Date: 20150529
  Serious: Yes (Other)
  Sender: FDA-Public Use
  Company Number: US-CIPLA LTD.-2014US02940

PATIENT

DRUGS (7)
  1. GEMCITABINE [Suspect]
     Active Substance: GEMCITABINE\GEMCITABINE HYDROCHLORIDE
     Indication: LEIOMYOSARCOMA METASTATIC
     Dosage: 900 MG/M2 ON DAYS ONE AND EIGHT, OVER 90 MIN
     Route: 042
  2. GRANULOCYTE GROWTH FACTOR [Concomitant]
     Dosage: 150 ?G/M2, ON DAY NINE THROUGH 15 OF A 21 DAY CYCLE
     Route: 058
  3. GEMCITABINE [Suspect]
     Active Substance: GEMCITABINE\GEMCITABINE HYDROCHLORIDE
     Dosage: 675 MG/M2 ON DAYS ONE AND EIGHT, OVER 90 MIN.
     Route: 042
  4. PEGFILGRASTIM [Concomitant]
     Active Substance: PEGFILGRASTIM
     Dosage: 6 MG ON DAY NINE OR 10
     Route: 058
  5. DEXAMETHASONE. [Concomitant]
     Active Substance: DEXAMETHASONE
     Indication: PREMEDICATION
     Dosage: 8 MG ORALLY TWICE A DAY STARTING THE DAY PRIOR TO DOCETAXEL AND CONTINUING FOR 3 DAYS
  6. DOCETAXEL. [Suspect]
     Active Substance: DOCETAXEL
     Indication: LEIOMYOSARCOMA METASTATIC
     Dosage: 100 MG/M2 ON DAY EIGHT, OVER 1 HOUR.
     Route: 042
  7. DOCETAXEL. [Suspect]
     Active Substance: DOCETAXEL
     Dosage: 75 MG/M2 ON DAY EIGHT, OVER 1 HOUR.
     Route: 042

REACTIONS (1)
  - Coagulopathy [Unknown]
